FAERS Safety Report 23690834 (Version 2)
Quarter: 2024Q2

REPORT INFORMATION
  Report Type: Spontaneous
  Country: FR (occurrence: None)
  Receive Date: 20240401
  Receipt Date: 20240604
  Transmission Date: 20240716
  Serious: Yes (Life-Threatening, Hospitalization)
  Sender: FDA-Public Use
  Company Number: 2024A074251

PATIENT
  Age: 80 Year
  Sex: Female
  Weight: 46 kg

DRUGS (1)
  1. TAGRISSO [Suspect]
     Active Substance: OSIMERTINIB
     Indication: Lung adenocarcinoma
     Route: 048
     Dates: start: 20240221, end: 20240307

REACTIONS (1)
  - Subcorneal pustular dermatosis [Recovered/Resolved]

NARRATIVE: CASE EVENT DATE: 20240226
